FAERS Safety Report 16430472 (Version 1)
Quarter: 2019Q2

REPORT INFORMATION
  Report Type: Spontaneous
  Country: AU (occurrence: AU)
  Receive Date: 20190614
  Receipt Date: 20190614
  Transmission Date: 20190711
  Serious: Yes (Death, Hospitalization, Other)
  Sender: FDA-Public Use
  Company Number: AU-AUROBINDO-AUR-APL-2019-035296

PATIENT

DRUGS (1)
  1. FOLOTYN [Suspect]
     Active Substance: PRALATREXATE
     Indication: PERIPHERAL T-CELL LYMPHOMA UNSPECIFIED
     Dosage: 24.4 MH/M2
     Route: 065
     Dates: start: 20190409, end: 20190416

REACTIONS (4)
  - Chills [Fatal]
  - Pancytopenia [Fatal]
  - Rash [Fatal]
  - Ulcer [Fatal]

NARRATIVE: CASE EVENT DATE: 20190422
